FAERS Safety Report 6713885-0 (Version None)
Quarter: 2010Q2

REPORT INFORMATION
  Report Type: 
  Country: None (occurrence: None)
  Receive Date: 20100506
  Receipt Date: 20100424
  Transmission Date: 20101027
  Serious: Yes (Hospitalization, Other)
  Sender: FDA-Public Use
  Company Number: US-PFIZER INC-2010052619

PATIENT
  Age: 28 Year
  Sex: Female
  Weight: 101.13 kg

DRUGS (7)
  1. GEODON [Suspect]
     Indication: PSYCHOTIC DISORDER
     Dosage: 80 MG, 2X/DAY
     Route: 048
     Dates: start: 20050101, end: 20100101
  2. GEODON [Suspect]
     Dosage: 240MG DAILY
     Dates: start: 20050101, end: 20100101
  3. CYMBALTA [Concomitant]
     Dosage: UNK
  4. WELLBUTRIN [Concomitant]
     Dosage: UNK
  5. MIRAPEX [Concomitant]
     Dosage: UNK
  6. REQUIP [Concomitant]
     Dosage: UNK
  7. ABILIFY [Concomitant]
     Dosage: UNK

REACTIONS (6)
  - EMOTIONAL DISTRESS [None]
  - ENURESIS [None]
  - IMPAIRED SELF-CARE [None]
  - IMPATIENCE [None]
  - NEUROLOGICAL SYMPTOM [None]
  - PSYCHOTIC DISORDER [None]
